FAERS Safety Report 8575821-4 (Version None)
Quarter: 2012Q3

REPORT INFORMATION
  Report Type: 
  Country: None (occurrence: None)
  Receive Date: 20120807
  Receipt Date: 20120731
  Transmission Date: 20120928
  Serious: No
  Sender: FDA-Public Use
  Company Number: US-B.I. PHARMACEUTICALS,INC./RIDGEFIELD-2011-BP-21283BP

PATIENT
  Sex: Female

DRUGS (2)
  1. SPIRIVA [Suspect]
     Indication: CHRONIC OBSTRUCTIVE PULMONARY DISEASE
     Dosage: 18 MCG
     Route: 055
     Dates: start: 20110801
  2. OXYGEN [Concomitant]
     Indication: CHRONIC OBSTRUCTIVE PULMONARY DISEASE
     Route: 045
     Dates: start: 20110301

REACTIONS (9)
  - OROPHARYNGEAL PAIN [None]
  - HEART RATE INCREASED [None]
  - DRY MOUTH [None]
  - ANXIETY [None]
  - DIARRHOEA [None]
  - ABDOMINAL DISCOMFORT [None]
  - HALO VISION [None]
  - ATRIAL FIBRILLATION [None]
  - DYSPNOEA [None]
